FAERS Safety Report 6517866-1 (Version None)
Quarter: 2009Q4

REPORT INFORMATION
  Report Type: 
  Country: None (occurrence: None)
  Receive Date: 20091223
  Receipt Date: 20091223
  Transmission Date: 20100525
  Serious: Yes (Other)
  Sender: FDA-Public Use
  Company Number: None

PATIENT
  Sex: Male

DRUGS (1)
  1. ACTOS [Suspect]
     Indication: DIABETES MELLITUS
     Dosage: 1 DAILY, ORAL
     Route: 048
     Dates: start: 20080801, end: 20090706

REACTIONS (3)
  - INFECTION [None]
  - OEDEMA PERIPHERAL [None]
  - SKIN ULCER [None]
